FAERS Safety Report 10273682 (Version 1)
Quarter: 2014Q2

REPORT INFORMATION
  Report Type: Spontaneous
  Country: IT (occurrence: None)
  Receive Date: 20140630
  Receipt Date: 20140630
  Transmission Date: 20141212
  Serious: Yes (Other)
  Sender: FDA-Public Use
  Company Number: AUR-APL-2014-06670

PATIENT
  Age: 55 Year
  Sex: Male

DRUGS (1)
  1. AMOXICILLIN TABLETS 1G (AMOXICILLIN) TABLET, 1G [Suspect]
     Indication: PHARYNGITIS
     Dosage: TOTAL
     Route: 048
     Dates: start: 20140521, end: 20140521

REACTIONS (2)
  - Urticaria [None]
  - Paraesthesia oral [None]
